FAERS Safety Report 21016712 (Version 1)
Quarter: 2022Q2

REPORT INFORMATION
  Report Type: Spontaneous
  Country: FR (occurrence: FR)
  Receive Date: 20220628
  Receipt Date: 20220628
  Transmission Date: 20220720
  Serious: Yes (Death, Other)
  Sender: FDA-Public Use
  Company Number: FR-ASTELLAS-2022US023030

PATIENT
  Age: 60 Year
  Sex: Female

DRUGS (2)
  1. XOSPATA [Suspect]
     Active Substance: GILTERITINIB
     Indication: Acute myeloid leukaemia
     Route: 065
     Dates: start: 202201
  2. XOSPATA [Suspect]
     Active Substance: GILTERITINIB
     Route: 065

REACTIONS (2)
  - Acute myeloid leukaemia [Fatal]
  - Drug ineffective [Unknown]

NARRATIVE: CASE EVENT DATE: 20220601
